FAERS Safety Report 5575507-4 (Version None)
Quarter: 2007Q4

REPORT INFORMATION
  Report Type: 
  Country: None (occurrence: None)
  Receive Date: 20071130
  Receipt Date: 20070728
  Transmission Date: 20080405
  Serious: No
  Sender: FDA-Public Use
  Company Number: US200707007180

PATIENT
  Sex: Male

DRUGS (1)
  1. BYETTA [Suspect]
     Dosage: SUBCUTANEOUS
     Route: 058

REACTIONS (5)
  - ASTHENIA [None]
  - FATIGUE [None]
  - FEELING COLD [None]
  - HYPERHIDROSIS [None]
  - SOMNOLENCE [None]
